FAERS Safety Report 12509553 (Version 2)
Quarter: 2016Q2

REPORT INFORMATION
  Report Type: Spontaneous
  Country: US (occurrence: US)
  Receive Date: 20160629
  Receipt Date: 20160630
  Transmission Date: 20160815
  Serious: Yes (Other)
  Sender: FDA-Public Use
  Company Number: US-PFIZER INC-2016223089

PATIENT
  Age: 90 Year
  Sex: Female
  Weight: 86 kg

DRUGS (1)
  1. REVATIO [Suspect]
     Active Substance: SILDENAFIL CITRATE
     Indication: CARDIAC DISORDER
     Dosage: 20 MG, 3X/DAY
     Route: 048

REACTIONS (4)
  - Joint injury [Unknown]
  - Extrasystoles [Unknown]
  - Drug dose omission [Unknown]
  - Product use issue [Unknown]
